FAERS Safety Report 6253952-1 (Version None)
Quarter: 2009Q3

REPORT INFORMATION
  Report Type: 
  Country: None (occurrence: None)
  Receive Date: 20090701
  Receipt Date: 20090701
  Transmission Date: 20100115
  Serious: Yes (Other)
  Sender: FDA-Public Use
  Company Number: None

PATIENT
  Sex: Female
  Weight: 68.0396 kg

DRUGS (1)
  1. ZICAM COLD REMEDY [Suspect]
     Indication: NASOPHARYNGITIS
     Dosage: NASAL
     Route: 045
     Dates: start: 20040201, end: 20040301

REACTIONS (2)
  - AGEUSIA [None]
  - ANOSMIA [None]
